FAERS Safety Report 24880263 (Version 1)
Quarter: 2025Q1

REPORT INFORMATION
  Report Type: Spontaneous
  Country: FR (occurrence: FR)
  Receive Date: 20250123
  Receipt Date: 20250123
  Transmission Date: 20250409
  Serious: Yes (Death, Hospitalization)
  Sender: MYLAN
  Company Number: None

PATIENT
  Age: 65 Year
  Sex: Female

DRUGS (6)
  1. METFORMIN [Suspect]
     Active Substance: METFORMIN HYDROCHLORIDE
     Indication: Type 2 diabetes mellitus
     Dosage: 1.5 GRAM, QD (LONG COURSE)
     Route: 048
     Dates: end: 20240812
  2. HYDROCHLOROTHIAZIDE\IRBESARTAN [Suspect]
     Active Substance: HYDROCHLOROTHIAZIDE\IRBESARTAN
     Indication: Hypertension
     Dosage: 1 DOSAGE FORM, QD (LONG COURSE)
     Route: 048
     Dates: end: 20240812
  3. ASPIRIN [Concomitant]
     Active Substance: ASPIRIN
     Route: 065
  4. BISOPROLOL FUMARATE [Concomitant]
     Active Substance: BISOPROLOL FUMARATE
     Route: 065
  5. ATORVASTATIN [Concomitant]
     Active Substance: ATORVASTATIN
     Route: 065
  6. Loxen [Concomitant]
     Route: 065

REACTIONS (2)
  - Acute kidney injury [Fatal]
  - Lactic acidosis [Fatal]

NARRATIVE: CASE EVENT DATE: 20240816
